FAERS Safety Report 5993083-9 (Version None)
Quarter: 2008Q4

REPORT INFORMATION
  Report Type: 
  Country: None (occurrence: None)
  Receive Date: 20081212
  Receipt Date: 20080602
  Transmission Date: 20090506
  Serious: No
  Sender: FDA-Public Use
  Company Number: US-AMGEN-KDL283983

PATIENT
  Sex: Female

DRUGS (4)
  1. ENBREL [Suspect]
     Indication: RHEUMATOID ARTHRITIS
     Route: 058
     Dates: start: 20080302
  2. ENBREL [Suspect]
     Indication: OSTEOARTHRITIS
  3. METHOTREXATE [Concomitant]
  4. PREDNISONE [Concomitant]

REACTIONS (2)
  - OSTEOARTHRITIS [None]
  - RHEUMATOID ARTHRITIS [None]
